FAERS Safety Report 17521793 (Version 1)
Quarter: 2020Q1

REPORT INFORMATION
  Report Type: Spontaneous
  Country: PT (occurrence: PT)
  Receive Date: 20200310
  Receipt Date: 20200310
  Transmission Date: 20200409
  Serious: Yes (Other)
  Sender: FDA-Public Use
  Company Number: PT-SA-2020SA060081

PATIENT
  Age: 44 Year
  Sex: Female
  Weight: 77.5 kg

DRUGS (11)
  1. TACROLIMUS. [Concomitant]
     Active Substance: TACROLIMUS
  2. FLUCONAZOLE. [Concomitant]
     Active Substance: FLUCONAZOLE
  3. DILTIAZEM. [Concomitant]
     Active Substance: DILTIAZEM
  4. PANTOPRAZOLE [Concomitant]
     Active Substance: PANTOPRAZOLE
  5. CIPROFLOXACIN. [Concomitant]
     Active Substance: CIPROFLOXACIN
  6. ALPRAZOLAM. [Concomitant]
     Active Substance: ALPRAZOLAM
  7. VALGANCICLOVIR. [Concomitant]
     Active Substance: VALGANCICLOVIR
  8. PREDNISOLONE. [Concomitant]
     Active Substance: PREDNISOLONE
  9. NYSTATIN. [Concomitant]
     Active Substance: NYSTATIN
     Dosage: 4XDIA
  10. MYCOPHENOLATE MOFETIL. [Concomitant]
     Active Substance: MYCOPHENOLATE MOFETIL
  11. THYMOGLOBULIN [Suspect]
     Active Substance: LAPINE T-LYMPHOCYTE IMMUNE GLOBULIN
     Indication: IMMUNOSUPPRESSION
     Dosage: 1200MG 6 DIAS
     Route: 042
     Dates: start: 20140522, end: 20140527

REACTIONS (1)
  - Haemolytic anaemia [Recovered/Resolved]

NARRATIVE: CASE EVENT DATE: 20140531
